FAERS Safety Report 7726741-6 (Version None)
Quarter: 2011Q3

REPORT INFORMATION
  Report Type: 
  Country: None (occurrence: None)
  Receive Date: 20110902
  Receipt Date: 20110819
  Transmission Date: 20111222
  Serious: Yes (Hospitalization)
  Sender: FDA-Public Use
  Company Number: US-GLAXOSMITHKLINE-A0747130A

PATIENT
  Age: 57 Year
  Sex: Male
  Weight: 77.3 kg

DRUGS (4)
  1. AVANDIA [Suspect]
     Indication: TYPE 2 DIABETES MELLITUS
     Dosage: 4MG PER DAY
     Route: 048
     Dates: start: 20000101, end: 20040101
  2. LISINOPRIL [Concomitant]
  3. SIMVASTATIN [Concomitant]
  4. LEVOTHYROXINE SODIUM [Concomitant]

REACTIONS (8)
  - NEUROPATHY PERIPHERAL [None]
  - PAIN [None]
  - HYPERLIPIDAEMIA [None]
  - DEPRESSION [None]
  - NERVOUSNESS [None]
  - HYPERTENSION [None]
  - MOVEMENT DISORDER [None]
  - CORONARY ARTERY DISEASE [None]
